FAERS Safety Report 11114681 (Version 1)
Quarter: 2015Q2

REPORT INFORMATION
  Report Type: Spontaneous
  Country: RU (occurrence: None)
  Receive Date: 20150512
  Receipt Date: 20150512
  Transmission Date: 20150821
  Serious: Yes (Life-Threatening)
  Sender: FDA-Public Use
  Company Number: 2015HINSPO0424

PATIENT
  Age: 3 Year
  Sex: Male
  Weight: 15 kg

DRUGS (1)
  1. LEVETIRACETAM (LEVETIRACETAM) TABLET, 3000MG [Suspect]
     Active Substance: LEVETIRACETAM
     Indication: EPILEPSY
     Route: 048
     Dates: start: 20141010, end: 20141014

REACTIONS (3)
  - Epilepsy [None]
  - Drug ineffective [None]
  - Syncope [None]

NARRATIVE: CASE EVENT DATE: 20141014
